FAERS Safety Report 8622037-9 (Version None)
Quarter: 2012Q3

REPORT INFORMATION
  Report Type: 
  Country: None (occurrence: None)
  Receive Date: 20120825
  Receipt Date: 20120815
  Transmission Date: 20120928
  Serious: Yes (Hospitalization, Disabling, Other)
  Sender: FDA-Public Use
  Company Number: US-009507513-1203USA03371

PATIENT

DRUGS (4)
  1. FOSAMAX PLUS D [Suspect]
     Indication: OSTEOPENIA
  2. FOSAMAX [Suspect]
     Indication: OSTEOPENIA
     Dosage: 70 MG, QW
     Route: 048
     Dates: start: 20020101
  3. FOSAMAX PLUS D [Suspect]
     Indication: OSTEOPOROSIS
     Dosage: 70 MG, UNK
     Route: 048
  4. FOSAMAX [Suspect]
     Indication: OSTEOPOROSIS
     Dosage: 10 MG, QD
     Dates: start: 20000623

REACTIONS (36)
  - HYPERTENSION [None]
  - FALL [None]
  - CONSTIPATION [None]
  - LIMB DISCOMFORT [None]
  - TOOTH DISORDER [None]
  - CATARACT [None]
  - FOOT FRACTURE [None]
  - FLATULENCE [None]
  - DYSPEPSIA [None]
  - WHITE BLOOD CELL COUNT INCREASED [None]
  - WOUND DRAINAGE [None]
  - FEMUR FRACTURE [None]
  - STRESS URINARY INCONTINENCE [None]
  - NOCTURIA [None]
  - ESCHERICHIA URINARY TRACT INFECTION [None]
  - HYPOTENSION [None]
  - POOR QUALITY SLEEP [None]
  - NAUSEA [None]
  - DRUG ERUPTION [None]
  - POLLAKIURIA [None]
  - HEADACHE [None]
  - LIVER FUNCTION TEST ABNORMAL [None]
  - MUSCULOSKELETAL CHEST PAIN [None]
  - DIARRHOEA [None]
  - LICHEN PLANUS [None]
  - BLOOD CHOLESTEROL INCREASED [None]
  - VULVOVAGINAL PRURITUS [None]
  - POSTOPERATIVE FEVER [None]
  - INJURY [None]
  - ANAEMIA POSTOPERATIVE [None]
  - ADJUSTMENT DISORDER WITH DEPRESSED MOOD [None]
  - THYROID NEOPLASM [None]
  - CAROTID BRUIT [None]
  - RASH [None]
  - DYSGEUSIA [None]
  - OEDEMA PERIPHERAL [None]
